FAERS Safety Report 10507350 (Version 2)
Quarter: 2015Q1

REPORT INFORMATION
  Report Type: Spontaneous
  Country: FR (occurrence: FR)
  Receive Date: 20141009
  Receipt Date: 20150121
  Transmission Date: 20150720
  Serious: Yes (Hospitalization)
  Sender: FDA-Public Use
  Company Number: FR-009507513-1410FRA002035

PATIENT
  Age: 83 Year
  Sex: Male

DRUGS (7)
  1. EXOMUC [Concomitant]
     Active Substance: ACETYLCYSTEINE
     Dosage: 200 MG, TWICE PER DAY
  2. ZOLPIDEM TARTRATE. [Concomitant]
     Active Substance: ZOLPIDEM TARTRATE
     Dosage: 10 MG, QD, ON EVENING
  3. SINGULAIR [Concomitant]
     Active Substance: MONTELUKAST SODIUM
     Dosage: 1 TABLET AT BEDTIME
  4. CARDENSIEL [Concomitant]
     Active Substance: BISOPROLOL FUMARATE
     Dosage: 2.5 MG, TWICE A DAY
  5. BRONCHOKOD [Concomitant]
     Active Substance: CARBOCYSTEINE
     Dosage: UNK
  6. PREVISCAN [Suspect]
     Active Substance: FLUINDIONE
     Indication: ATRIAL FIBRILLATION
     Dosage: 80 MG, PER WEEK, 10MG, 5 TIMES PER WEEK AND 15 MG,  2 TIMES PER WEEK
     Route: 048
     Dates: end: 20140528
  7. NORSET [Suspect]
     Active Substance: MIRTAZAPINE
     Dosage: 15 MG, QD, EVENING
     Route: 048

REACTIONS (1)
  - Subdural haematoma [Recovering/Resolving]

NARRATIVE: CASE EVENT DATE: 201405
